FAERS Safety Report 20036021 (Version 1)
Quarter: 2021Q4

REPORT INFORMATION
  Report Type: Spontaneous
  Country: IT (occurrence: IT)
  Receive Date: 20211105
  Receipt Date: 20211105
  Transmission Date: 20220303
  Serious: Yes (Other)
  Sender: FDA-Public Use
  Company Number: IT-ITALFARMACO-2021-001170

PATIENT
  Age: 28 Year
  Sex: Female

DRUGS (11)
  1. ZOLPIDEM [Suspect]
     Active Substance: ZOLPIDEM TARTRATE
     Indication: Major depression
     Dosage: 80 MILLIGRAM, ONCE A DAY
     Route: 048
  2. ZOLPIDEM [Suspect]
     Active Substance: ZOLPIDEM TARTRATE
     Dosage: 10 MILLIGRAM, ONCE A DAY
     Route: 065
  3. MELATONIN [Concomitant]
     Active Substance: MELATONIN
     Indication: Dissociation
  4. MELATONIN [Concomitant]
     Active Substance: MELATONIN
     Indication: Hallucination
  5. MELATONIN [Concomitant]
     Active Substance: MELATONIN
     Indication: Amnesia
  6. OLANZAPINE [Concomitant]
     Active Substance: OLANZAPINE
     Indication: Product used for unknown indication
     Dosage: 2.5 MILLIGRAM, ONCE A DAY
     Route: 065
  7. SERTRALINE [Concomitant]
     Active Substance: SERTRALINE HYDROCHLORIDE
     Indication: Major depression
     Dosage: 150 MILLIGRAM, ONCE A DAY
     Route: 065
  8. SERTRALINE [Concomitant]
     Active Substance: SERTRALINE HYDROCHLORIDE
     Dosage: 150 MILLIGRAM, ONCE A DAY
     Route: 065
  9. TRAZODONE [Concomitant]
     Active Substance: TRAZODONE HYDROCHLORIDE
     Indication: Dissociation
  10. TRAZODONE [Concomitant]
     Active Substance: TRAZODONE HYDROCHLORIDE
     Indication: Hallucination
  11. TRAZODONE [Concomitant]
     Active Substance: TRAZODONE HYDROCHLORIDE
     Indication: Amnesia

REACTIONS (7)
  - Hallucination [Unknown]
  - Drug abuse [Unknown]
  - Intentional product misuse [Unknown]
  - Dissociative disorder [Unknown]
  - Somnambulism [Unknown]
  - Amnesia [Unknown]
  - Prescription drug used without a prescription [Unknown]
